FAERS Safety Report 6973684-1 (Version None)
Quarter: 2010Q3

REPORT INFORMATION
  Report Type: 
  Country: None (occurrence: None)
  Receive Date: 20100909
  Receipt Date: 20100831
  Transmission Date: 20110219
  Serious: Yes (Other)
  Sender: FDA-Public Use
  Company Number: JP-ASTRAZENECA-2010SE37148

PATIENT
  Age: 62 Year
  Sex: Female
  Weight: 47 kg

DRUGS (5)
  1. SYMBICORT [Suspect]
     Indication: ASTHMA
     Route: 055
     Dates: start: 20100415
  2. SINGULAIR [Concomitant]
     Indication: ASTHMA
     Route: 048
     Dates: start: 20100408
  3. MUCOSOLVAN [Concomitant]
     Indication: ASTHMA
     Route: 048
     Dates: start: 20100427
  4. MEDICON [Concomitant]
     Indication: ASTHMA
     Route: 048
     Dates: start: 20100415
  5. MUCODYNE [Concomitant]
     Indication: ASTHMA
     Route: 048
     Dates: start: 20100624

REACTIONS (3)
  - HYPOKALAEMIA [None]
  - PHARYNGITIS [None]
  - PNEUMONIA [None]
